FAERS Safety Report 11136944 (Version 1)
Quarter: 2015Q2

REPORT INFORMATION
  Report Type: Spontaneous
  Country: US (occurrence: US)
  Receive Date: 20150526
  Receipt Date: 20150526
  Transmission Date: 20150821
  Serious: No
  Sender: FDA-Public Use
  Company Number: US-BAYER-2015-272529

PATIENT
  Age: 85 Year
  Sex: Male
  Weight: 80.73 kg

DRUGS (4)
  1. METAMUCIL [Concomitant]
     Active Substance: PLANTAGO SEED
  2. MILK OF MAGNESIA CHERRY [Suspect]
     Active Substance: MAGNESIUM HYDROXIDE
     Indication: CONSTIPATION
     Dosage: UNK
     Dates: start: 201504
  3. DULCOLAX [Concomitant]
     Active Substance: BISACODYL OR DOCUSATE SODIUM
  4. MIRALAX [Suspect]
     Active Substance: POLYETHYLENE GLYCOL 3350
     Indication: CONSTIPATION
     Dosage: UNK
     Dates: start: 201409, end: 2014

REACTIONS (3)
  - Incorrect drug administration duration [Unknown]
  - Inappropriate schedule of drug administration [Unknown]
  - Frequent bowel movements [Recovered/Resolved]

NARRATIVE: CASE EVENT DATE: 201409
